FAERS Safety Report 4391900-X (Version None)
Quarter: 2004Q3

REPORT INFORMATION
  Report Type: 
  Country: None (occurrence: None)
  Receive Date: 20040701
  Receipt Date: 20040618
  Transmission Date: 20050211
  Serious: Yes (Other)
  Sender: FDA-Public Use
  Company Number: US-JNJFOC-20040605436

PATIENT
  Sex: Male

DRUGS (1)
  1. DITROPAN XL [Suspect]
     Dosage: 10 MG, 1 IN 1 DAY, ORAL
     Route: 048

REACTIONS (3)
  - BLOOD PRESSURE ABNORMAL [None]
  - CEREBROVASCULAR ACCIDENT [None]
  - NO ADVERSE DRUG EFFECT [None]
